FAERS Safety Report 7691700-9 (Version None)
Quarter: 2011Q3

REPORT INFORMATION
  Report Type: 
  Country: None (occurrence: None)
  Receive Date: 20110818
  Receipt Date: 20101022
  Transmission Date: 20111222
  Serious: Yes (Hospitalization)
  Sender: FDA-Public Use
  Company Number: US-GLAXOSMITHKLINE-A0890325A

PATIENT
  Sex: Male

DRUGS (7)
  1. AVANDAMET [Suspect]
     Indication: DIABETES MELLITUS
     Route: 048
     Dates: start: 20070101, end: 20090101
  2. NEXIUM [Concomitant]
  3. ASPIRIN [Concomitant]
  4. MICARDIS [Concomitant]
  5. PERMETHRIN [Concomitant]
  6. CRESTOR [Concomitant]
  7. AVANDIA [Suspect]
     Indication: DIABETES MELLITUS
     Route: 048
     Dates: start: 20020101, end: 20070101

REACTIONS (2)
  - MYOCARDIAL INFARCTION [None]
  - ANGINA UNSTABLE [None]
